FAERS Safety Report 4871700-4 (Version None)
Quarter: 2005Q4

REPORT INFORMATION
  Report Type: 
  Country: None (occurrence: None)
  Receive Date: 20051230
  Receipt Date: 20051219
  Transmission Date: 20060501
  Serious: Yes (Other)
  Sender: FDA-Public Use
  Company Number: 2005151443

PATIENT
  Age: 57 Year
  Sex: Female

DRUGS (3)
  1. LYRICA [Suspect]
     Indication: NEURALGIA
     Dosage: ORAL
     Route: 048
     Dates: start: 20050922, end: 20050926
  2. AMITRIPTYLINE HCL [Suspect]
     Indication: ILL-DEFINED DISORDER
     Dosage: ORAL
     Route: 048
     Dates: start: 20050918, end: 20050926
  3. OXYCODAN (ACETYLSALICYLIC ACID, OXYCODONE HYDROCHLORIDE) [Concomitant]

REACTIONS (7)
  - APATHY [None]
  - AUTOMATISM [None]
  - MUSCLE TWITCHING [None]
  - MYOCLONUS [None]
  - OVERDOSE [None]
  - RESTLESSNESS [None]
  - SEDATION [None]
